FAERS Safety Report 18898019 (Version 2)
Quarter: 2021Q2

REPORT INFORMATION
  Report Type: Report from Study
  Country: US (occurrence: US)
  Receive Date: 20210216
  Receipt Date: 20210422
  Transmission Date: 20210717
  Serious: Yes (Other)
  Sender: FDA-Public Use
  Company Number: US-TAKEDA-US202027031

PATIENT
  Sex: Male
  Weight: 90.7 kg

DRUGS (50)
  1. GAMMAGARD S/D [Suspect]
     Active Substance: HUMAN IMMUNOGLOBULIN G
     Indication: IMMUNODEFICIENCY COMMON VARIABLE
     Dosage: 40 GRAM, 1/WEEK
     Route: 042
     Dates: start: 20180113
  2. CARDURA [Concomitant]
     Active Substance: DOXAZOSIN MESYLATE
  3. OXYBUTYNIN. [Concomitant]
     Active Substance: OXYBUTYNIN CHLORIDE
  4. LIOTHYRONINE [Concomitant]
     Active Substance: LIOTHYRONINE
  5. ZOFRAN [Concomitant]
     Active Substance: ONDANSETRON HYDROCHLORIDE
  6. ZOLPIDEM [Concomitant]
     Active Substance: ZOLPIDEM TARTRATE
  7. ASPIRIN (E.C.) [Concomitant]
     Active Substance: ASPIRIN
  8. SYNTHROID [Concomitant]
     Active Substance: LEVOTHYROXINE SODIUM
  9. OMEPRAZOLE. [Concomitant]
     Active Substance: OMEPRAZOLE
  10. CARVEDILOL. [Concomitant]
     Active Substance: CARVEDILOL
  11. MORPHIN [MORPHINE HYDROCHLORIDE] [Concomitant]
     Active Substance: MORPHINE HYDROCHLORIDE
  12. HEPARIN [Concomitant]
     Active Substance: HEPARIN SODIUM
  13. PEPCID [Concomitant]
     Active Substance: FAMOTIDINE
  14. ATORVASTATIN [Concomitant]
     Active Substance: ATORVASTATIN
  15. HUMAN NORMAL IMMUNOGLOBULIN; LIQUID [Suspect]
     Active Substance: HUMAN IMMUNOGLOBULIN G
     Indication: PRIMARY IMMUNODEFICIENCY SYNDROME
     Dosage: UNK
     Route: 042
  16. LIDOCAINE. [Concomitant]
     Active Substance: LIDOCAINE
  17. OXYCODONE [Concomitant]
     Active Substance: OXYCODONE
  18. XOPENEX [Concomitant]
     Active Substance: LEVALBUTEROL HYDROCHLORIDE
  19. SPIRIVA [Concomitant]
     Active Substance: TIOTROPIUM BROMIDE MONOHYDRATE
  20. CLOTRIMAZOLE 7 [Concomitant]
     Active Substance: CLOTRIMAZOLE
  21. MAXALT [Concomitant]
     Active Substance: RIZATRIPTAN BENZOATE
  22. PROMETHAZINE [Concomitant]
     Active Substance: PROMETHAZINE HYDROCHLORIDE
  23. DOCUSATE [Concomitant]
     Active Substance: DOCUSATE
  24. FLOMAX [MORNIFLUMATE] [Concomitant]
     Active Substance: MORNIFLUMATE
  25. MAGNESIUM [Concomitant]
     Active Substance: MAGNESIUM
  26. TESTOSTERONE. [Concomitant]
     Active Substance: TESTOSTERONE
  27. GABAPENTIN. [Concomitant]
     Active Substance: GABAPENTIN
  28. PLAVIX [Concomitant]
     Active Substance: CLOPIDOGREL BISULFATE
  29. LEVOXYL [Concomitant]
     Active Substance: LEVOTHYROXINE SODIUM
  30. CLONIDINE. [Concomitant]
     Active Substance: CLONIDINE
  31. RELPAX [Concomitant]
     Active Substance: ELETRIPTAN HYDROBROMIDE
  32. SINGULAIR [Concomitant]
     Active Substance: MONTELUKAST SODIUM
  33. NORVASC [Concomitant]
     Active Substance: AMLODIPINE BESYLATE
  34. LIPITOR [Concomitant]
     Active Substance: ATORVASTATIN CALCIUM
  35. CHLORTHALIDONE. [Concomitant]
     Active Substance: CHLORTHALIDONE
  36. SODIUM CHLORIDE. [Concomitant]
     Active Substance: SODIUM CHLORIDE
  37. EPINEPHRINE. [Concomitant]
     Active Substance: EPINEPHRINE
  38. LASIX [Concomitant]
     Active Substance: FUROSEMIDE
  39. HYDROCORTISONE. [Concomitant]
     Active Substance: HYDROCORTISONE
  40. MS CONTIN [Concomitant]
     Active Substance: MORPHINE SULFATE
  41. NALOXONE [Concomitant]
     Active Substance: NALOXONE
  42. DIOVAN [Concomitant]
     Active Substance: VALSARTAN
  43. FLONASE [Concomitant]
     Active Substance: FLUTICASONE PROPIONATE
  44. GAMMAGARD S/D [Suspect]
     Active Substance: HUMAN IMMUNOGLOBULIN G
     Indication: IMMUNODEFICIENCY COMMON VARIABLE
     Dosage: 40 GRAM, 1/WEEK
     Route: 042
     Dates: start: 20180113
  45. DIPHENHYDRAMINE. [Concomitant]
     Active Substance: DIPHENHYDRAMINE
  46. HYDROXYCHLOROQUINE [Concomitant]
     Active Substance: HYDROXYCHLOROQUINE
  47. MIRALAX [Concomitant]
     Active Substance: POLYETHYLENE GLYCOL 3350
  48. SENNA?S [DOCUSATE SODIUM;SENNA ALEXANDRINA] [Concomitant]
  49. POTASSIUM [Concomitant]
     Active Substance: POTASSIUM
  50. BACLOFEN. [Concomitant]
     Active Substance: BACLOFEN

REACTIONS (4)
  - Hip arthroplasty [Unknown]
  - Arthralgia [Unknown]
  - Bronchitis [Unknown]
  - Back pain [Unknown]
